FAERS Safety Report 23567031 (Version 1)
Quarter: 2024Q1

REPORT INFORMATION
  Report Type: Spontaneous
  Country: US (occurrence: US)
  Receive Date: 20240226
  Receipt Date: 20240226
  Transmission Date: 20240410
  Serious: No
  Sender: FDA-Public Use
  Company Number: US-AMNEAL PHARMACEUTICALS-2023-AMRX-04101

PATIENT
  Age: 72 Year
  Sex: Male

DRUGS (3)
  1. RYTARY [Suspect]
     Active Substance: CARBIDOPA\LEVODOPA
     Indication: Product used for unknown indication
     Dosage: 61.25/245 MILLIGRAM, 2 CAPSULES, 3 /DAY
     Route: 048
  2. RYTARY [Suspect]
     Active Substance: CARBIDOPA\LEVODOPA
     Dosage: 61.25/245 MILLIGRAM 1 CAPSULE 4/DAY;  48.75/195 MILLIGRAM 1 CAPSULE ONCE A DAY; AND 36.25/145 MILLIG
     Route: 048
     Dates: start: 20231101
  3. RYTARY [Suspect]
     Active Substance: CARBIDOPA\LEVODOPA
     Dosage: 61.25-24SMG 1 CAPSULE FIVE TIMES DAILY, 48.75-195MG - TAKE 1 CAPSULE ONCE DAILY, AND 36.25-145MG 1 C
     Route: 048
     Dates: start: 20240119

REACTIONS (1)
  - Adverse event [Unknown]

NARRATIVE: CASE EVENT DATE: 20231108
